FAERS Safety Report 4711002-X (Version None)
Quarter: 2005Q3

REPORT INFORMATION
  Report Type: 
  Country: None (occurrence: None)
  Receive Date: 20050708
  Receipt Date: 20050623
  Transmission Date: 20060218
  Serious: Yes (Other)
  Sender: FDA-Public Use
  Company Number: ACO_0174_2005

PATIENT
  Age: 48 Year
  Sex: Female

DRUGS (4)
  1. TIZANIDINE HCL [Suspect]
     Indication: MYALGIA
     Dosage: 2 MG QDAY PO
     Route: 048
     Dates: start: 20050614, end: 20050615
  2. PROPRANOL [Concomitant]
  3. LOSARTAN POTASSIUM W/HYDROCHLOROTHIAZIDE [Concomitant]
  4. EUTHYROX [Concomitant]

REACTIONS (5)
  - DIFFICULTY IN WALKING [None]
  - DIZZINESS [None]
  - DRY MOUTH [None]
  - FEELING ABNORMAL [None]
  - SPEECH DISORDER [None]
